FAERS Safety Report 4930685-2 (Version None)
Quarter: 2006Q1

REPORT INFORMATION
  Report Type: 
  Country: None (occurrence: None)
  Receive Date: 20060227
  Receipt Date: 20060209
  Transmission Date: 20060701
  Serious: Yes (Other)
  Sender: FDA-Public Use
  Company Number: TRP_0707_2006

PATIENT
  Age: 54 Year
  Sex: Male

DRUGS (8)
  1. RIBASPHERE/RIBAVIRIN/THREE RIVERS PHARMA/200MG [Suspect]
     Indication: HEPATITIS C
     Dosage: DF PO
     Route: 048
     Dates: start: 20051106
  2. PEG-INTRON [Suspect]
     Indication: HEPATITIS C
     Dosage: DF SC
     Route: 058
     Dates: start: 20051106
  3. AMOXICILLIN [Concomitant]
  4. CIALIS [Concomitant]
  5. FUROSEMIDE [Concomitant]
  6. GLIPIZIDE [Concomitant]
  7. HYDROXYZINE [Concomitant]
  8. NORVASC [Concomitant]

REACTIONS (5)
  - LOSS OF CONSCIOUSNESS [None]
  - MYALGIA [None]
  - NAUSEA [None]
  - PAIN [None]
  - VOMITING [None]
